FAERS Safety Report 8903371 (Version 2)
Quarter: 2014Q1

REPORT INFORMATION
  Report Type: Spontaneous
  Country: US (occurrence: US)
  Receive Date: 20121113
  Receipt Date: 20140314
  Transmission Date: 20141002
  Serious: Yes (Hospitalization)
  Sender: FDA-Public Use
  Company Number: PHHY2012US104343

PATIENT
  Age: 67 Year
  Sex: Female

DRUGS (10)
  1. SIMVASTATIN [Suspect]
     Dosage: 40 MG, UNK
  2. CRANBERRY JUICE [Interacting]
  3. INSULIN GLARGINE [Concomitant]
     Dosage: 20 U, UNK
  4. INSULIN ASPART [Concomitant]
     Dosage: 3 UNITS BEFORE EACH MEAL
  5. CARVEDILOL [Concomitant]
     Dosage: 12.5 MG, BID
  6. ASPIRIN [Concomitant]
     Dosage: 81 MG, UNK
  7. WARFARIN [Concomitant]
     Dosage: 6-7 MG, UNK
  8. FUROSEMIDE [Concomitant]
  9. MULTIVITAMINS [Concomitant]
  10. CALCIUM W/VITAMIN D NOS [Concomitant]
     Dosage: 500 MG/200 IU

REACTIONS (6)
  - Rhabdomyolysis [Recovered/Resolved]
  - Muscular weakness [Recovered/Resolved]
  - Oedema peripheral [Recovered/Resolved]
  - Myalgia [Recovered/Resolved]
  - Hepatitis [Recovered/Resolved]
  - Labelled drug-food interaction medication error [Unknown]
